FAERS Safety Report 9294860 (Version 1)
Quarter: 2013Q2

REPORT INFORMATION
  Report Type: Spontaneous
  Country: US (occurrence: None)
  Receive Date: 20130516
  Receipt Date: 20130516
  Transmission Date: 20140414
  Serious: Yes (Life-Threatening, Other)
  Sender: FDA-Public Use
  Company Number: None

PATIENT
  Sex: Female
  Weight: 61.69 kg

DRUGS (1)
  1. ZIPRASIDONE HCL [Suspect]
     Indication: DEPRESSION
     Route: 048

REACTIONS (3)
  - Breast cyst [None]
  - Vaginal haemorrhage [None]
  - Cardiac disorder [None]
